FAERS Safety Report 8663059 (Version 3)
Quarter: 2013Q2

REPORT INFORMATION
  Report Type: Report from Study
  Country: JP (occurrence: JP)
  Receive Date: 20120713
  Receipt Date: 20130517
  Transmission Date: 20140414
  Serious: Yes (Other)
  Sender: FDA-Public Use
  Company Number: JP-MSD-1207JPN001809

PATIENT
  Age: 50 Year
  Sex: Male

DRUGS (15)
  1. ISENTRESS TABLETS 400MG [Suspect]
     Indication: HIV INFECTION
     Dosage: 800 MG, QD
     Route: 048
     Dates: start: 20110901
  2. RETROVIR [Suspect]
     Indication: HIV INFECTION
     Dosage: 400 MG, QD
     Route: 048
     Dates: start: 20061207, end: 20110901
  3. EPIVIR [Suspect]
     Indication: HIV INFECTION
     Dosage: 300 MG, QD
     Route: 048
     Dates: start: 20040123, end: 20110901
  4. EPIVIR [Suspect]
     Dosage: 300 MG, QD
     Route: 048
     Dates: start: 20010426, end: 20040122
  5. NORVIR [Suspect]
     Indication: HIV INFECTION
     Dosage: 100 MG, QD DIVIDED DOSE FREQUENCY U
     Route: 048
     Dates: start: 20051215, end: 20110901
  6. REYATAZ [Suspect]
     Indication: HIV INFECTION
     Dosage: 300 MG, QD
     Route: 048
     Dates: start: 20060401, end: 20110901
  7. REYATAZ [Suspect]
     Dosage: 400 MG, QD
     Route: 048
     Dates: start: 20040827, end: 20050331
  8. REYATAZ [Suspect]
     Dosage: 300 MG, QD
     Route: 048
     Dates: start: 20051215, end: 20060331
  9. REYATAZ [Suspect]
     Dosage: 400 MG, QD
     Route: 048
     Dates: start: 20050401, end: 20051214
  10. EPZICOM [Suspect]
     Indication: HIV INFECTION
     Dosage: 1 DF, QD
     Route: 048
     Dates: start: 20110902
  11. MAGNESIUM OXIDE [Concomitant]
     Indication: CONSTIPATION
     Dosage: 500 MG, TID
     Route: 048
     Dates: start: 20110401, end: 20111114
  12. EUGLUCON [Concomitant]
     Indication: DIABETES MELLITUS
     Dosage: 2.5 MG, BID
     Route: 048
     Dates: start: 20110401
  13. LIVALO [Concomitant]
     Indication: HYPERLIPIDAEMIA
     Dosage: 1 MG, BID
     Route: 048
     Dates: start: 20110401
  14. METGLUCO [Concomitant]
     Indication: DIABETES MELLITUS
     Dosage: 250 MG, TID
     Route: 048
     Dates: start: 20120123
  15. NU-LOTAN TABLET 50 [Concomitant]
     Indication: HYPERTENSION
     Dosage: 25 MG, QD
     Route: 048
     Dates: start: 20120123

REACTIONS (4)
  - Gamma-glutamyltransferase increased [Not Recovered/Not Resolved]
  - Blood bilirubin increased [Recovered/Resolved]
  - Blood alkaline phosphatase increased [Recovered/Resolved]
  - Blood urine present [Recovering/Resolving]
